FAERS Safety Report 20812658 (Version 1)
Quarter: 2022Q2

REPORT INFORMATION
  Report Type: Spontaneous
  Country: DE (occurrence: DE)
  Receive Date: 20220511
  Receipt Date: 20220511
  Transmission Date: 20220721
  Serious: No
  Sender: FDA-Public Use
  Company Number: None

PATIENT
  Sex: Female

DRUGS (2)
  1. PREGABALIN [Suspect]
     Active Substance: PREGABALIN
     Indication: Limb discomfort
     Dosage: 125 MILLIGRAM, QD
     Route: 065
     Dates: start: 20220210, end: 202202
  2. PREGABALIN [Suspect]
     Active Substance: PREGABALIN
     Indication: Restless legs syndrome

REACTIONS (2)
  - Feeling abnormal [Unknown]
  - Gait disturbance [Unknown]

NARRATIVE: CASE EVENT DATE: 20220201
